FAERS Safety Report 6428677-X (Version None)
Quarter: 2009Q4

REPORT INFORMATION
  Report Type: 
  Country: None (occurrence: None)
  Receive Date: 20091105
  Receipt Date: 20091030
  Transmission Date: 20100525
  Serious: Yes (Other)
  Sender: FDA-Public Use
  Company Number: US-JNJFOC-20091100867

PATIENT
  Age: 64 Year
  Sex: Female
  Weight: 59.88 kg

DRUGS (2)
  1. PEPCID AC [Suspect]
     Route: 048
     Dates: start: 20091016, end: 20091019
  2. PEPCID AC [Suspect]
     Indication: GASTROOESOPHAGEAL REFLUX DISEASE
     Route: 048
     Dates: start: 20091016, end: 20091019

REACTIONS (3)
  - EATING DISORDER [None]
  - ORAL CANDIDIASIS [None]
  - WEIGHT DECREASED [None]
